FAERS Safety Report 5797170-X (Version None)
Quarter: 2008Q2

REPORT INFORMATION
  Report Type: 
  Country: None (occurrence: None)
  Receive Date: 20080627
  Receipt Date: 20080612
  Transmission Date: 20081010
  Serious: Yes (Hospitalization)
  Sender: FDA-Public Use
  Company Number: 230034M08FRA

PATIENT
  Age: 39 Year
  Sex: Female
  Weight: 55 kg

DRUGS (4)
  1. REBIF [Suspect]
     Indication: MULTIPLE SCLEROSIS
     Dates: start: 20020101
  2. SPIFEN (IBUPROFEN) (IBUPROFEN) [Suspect]
     Indication: NASOPHARYNGITIS
  3. CLONAZEPAM [Concomitant]
  4. MOVICOL (NULYTELY) [Concomitant]

REACTIONS (7)
  - DIALYSIS [None]
  - DRUG INTERACTION [None]
  - EPISTAXIS [None]
  - HAEMOLYTIC URAEMIC SYNDROME [None]
  - HYPERTENSION [None]
  - MALAISE [None]
  - RENAL FAILURE ACUTE [None]
